FAERS Safety Report 9698303 (Version 4)
Quarter: 2013Q4

REPORT INFORMATION
  Report Type: Spontaneous
  Country: US (occurrence: None)
  Receive Date: 20131030
  Receipt Date: 20131120
  Transmission Date: 20140711
  Serious: Yes (Other)
  Sender: FDA-Public Use
  Company Number: 2012033067

PATIENT
  Age: 7 Year
  Sex: Male

DRUGS (8)
  1. HIZENTRA [Suspect]
     Indication: IMMUNODEFICIENCY COMMON VARIABLE
     Dosage: 5 G 1X/WEEK, MONDAYS; IN 2 SITES USING 300 MM TUBING OVER 1 HOUR IN LEFT LEG (THIGH) AND ABDOMEN SUBCUTANEOUS),
     Route: 058
     Dates: start: 20120806, end: 20120806
  2. ZYRTEC (CETIRIZINE HYDROCHLORIDE) [Concomitant]
  3. SINGULAIR (MONTELUKAST) 10MG [Concomitant]
  4. PRILOSEC (OMEPRAZOLE) [Concomitant]
  5. PULMICORT (BUDESONIDE) [Concomitant]
  6. ALBUTEROL (SALBUTAMOL) [Concomitant]
  7. CULTURELLE (LACTOBACILLUS ACIDOPHILUS) [Concomitant]
  8. EPIPEN (EPINEPHRINE) [Concomitant]

REACTIONS (10)
  - Headache [None]
  - Pyrexia [None]
  - Arthralgia [None]
  - Abdominal pain [None]
  - Abdominal distension [None]
  - Flatulence [None]
  - Infusion site cellulitis [None]
  - Weight increased [None]
  - Arthralgia [None]
  - Abdominal pain [None]
